FAERS Safety Report 5423713-1 (Version None)
Quarter: 2007Q3

REPORT INFORMATION
  Report Type: 
  Country: None (occurrence: None)
  Receive Date: 20070727
  Receipt Date: 20060131
  Transmission Date: 20080115
  Serious: Yes (Hospitalization)
  Sender: FDA-Public Use
  Company Number: THYM-10868

PATIENT
  Age: 80 Year
  Sex: Female
  Weight: 62.1 kg

DRUGS (1)
  1. THYMOGLOBULIN [Suspect]
     Indication: DRUG USE FOR UNKNOWN INDICATION
     Dates: start: 20051108, end: 20051114

REACTIONS (1)
  - LOWER GASTROINTESTINAL HAEMORRHAGE [None]
